FAERS Safety Report 6903433-4 (Version None)
Quarter: 2010Q3

REPORT INFORMATION
  Report Type: 
  Country: None (occurrence: None)
  Receive Date: 20100803
  Receipt Date: 20081001
  Transmission Date: 20110219
  Serious: Yes (Other)
  Sender: FDA-Public Use
  Company Number: US-PFIZER INC-2008083555

PATIENT
  Sex: Female
  Weight: 81.6 kg

DRUGS (7)
  1. LYRICA [Suspect]
     Indication: NEURALGIA
     Dates: start: 20070101
  2. VITAMIN D [Concomitant]
  3. ZOLOFT [Concomitant]
  4. HYDROCHLOROTHIAZIDE [Concomitant]
  5. RITALIN [Concomitant]
  6. WELLBUTRIN [Concomitant]
  7. ETODOLAC [Concomitant]

REACTIONS (5)
  - DISTURBANCE IN ATTENTION [None]
  - DIZZINESS [None]
  - DRY MOUTH [None]
  - JOINT SWELLING [None]
  - PAIN [None]
